FAERS Safety Report 14959338 (Version 3)
Quarter: 2020Q3

REPORT INFORMATION
  Report Type: Spontaneous
  Country: BE (occurrence: BE)
  Receive Date: 20180531
  Receipt Date: 20200730
  Transmission Date: 20201102
  Serious: No
  Sender: FDA-Public Use
  Company Number: BE-BAUSCH-BL-2018-013532

PATIENT
  Age: 24 Year
  Sex: Female

DRUGS (13)
  1. LISINOPRIL AND HYDROCHLOROTHIAZIDE [Suspect]
     Active Substance: HYDROCHLOROTHIAZIDE\LISINOPRIL
     Indication: OCCUPATIONAL EXPOSURE TO PRODUCT
     Dosage: AIRBORNE EXPOSURE DURING HER WORK ,WHICH INVOLVED BREAKING AND CRUSHING DIFFERENT TYPES OF TABLET
     Route: 061
  2. TETRAZEPAM [Suspect]
     Active Substance: TETRAZEPAM
     Indication: OCCUPATIONAL EXPOSURE TO PRODUCT
     Dosage: AIRBORNE EXPOSURE DURING HER WORK ,WHICH INVOLVED BREAKING AND CRUSHING DIFFERENT TYPES OF TABLET
     Route: 061
  3. LORMETAZEPAM [Suspect]
     Active Substance: LORMETAZEPAM
     Indication: OCCUPATIONAL EXPOSURE TO PRODUCT
     Dosage: AIRBORNE EXPOSURE DURING HER WORK ,WHICH INVOLVED BREAKING AND CRUSHING DIFFERENT TYPES OF TABLET
     Route: 061
  4. ENALAPRIL [Suspect]
     Active Substance: ENALAPRIL
     Indication: OCCUPATIONAL EXPOSURE TO PRODUCT
     Dosage: AIRBORNE EXPOSURE DURING HER WORK ,WHICH INVOLVED BREAKING AND CRUSHING DIFFERENT TYPES OF TABLET
     Route: 061
  5. BISOPROLOL [Suspect]
     Active Substance: BISOPROLOL
     Indication: OCCUPATIONAL EXPOSURE TO PRODUCT
     Dosage: AIRBORNE EXPOSURE DURING HER WORK ,WHICH INVOLVED BREAKING AND CRUSHING DIFFERENT TYPES OF TABLET
     Route: 061
  6. CAPTOPRIL. [Suspect]
     Active Substance: CAPTOPRIL
     Indication: OCCUPATIONAL EXPOSURE TO PRODUCT
     Route: 065
  7. ALPRAZOLAM. [Suspect]
     Active Substance: ALPRAZOLAM
     Route: 065
  8. SOTALOL. [Suspect]
     Active Substance: SOTALOL
     Indication: OCCUPATIONAL EXPOSURE TO PRODUCT
     Dosage: AIRBORNE EXPOSURE DURING HER WORK ,WHICH INVOLVED BREAKING AND CRUSHING DIFFERENT TYPES OF TABLET
     Route: 061
  9. LISINOPRIL. [Suspect]
     Active Substance: LISINOPRIL
     Indication: OCCUPATIONAL EXPOSURE TO PRODUCT
     Dosage: AIRBORNE EXPOSURE DURING HER WORK ,WHICH INVOLVED BREAKING AND CRUSHING DIFFERENT TYPES OF TABLET
     Route: 061
  10. PROPRANOLOL [Suspect]
     Active Substance: PROPRANOLOL HYDROCHLORIDE
     Indication: OCCUPATIONAL EXPOSURE TO PRODUCT
     Dosage: AIRBORNE EXPOSURE DURING HER WORK ,WHICH INVOLVED BREAKING AND CRUSHING DIFFERENT TYPES OF TABLET
     Route: 061
  11. ALPRAZOLAM. [Suspect]
     Active Substance: ALPRAZOLAM
     Indication: OCCUPATIONAL EXPOSURE TO PRODUCT
     Dosage: AIRBORNE EXPOSURE DURING HER WORK ,WHICH INVOLVED BREAKING AND CRUSHING DIFFERENT TYPES OF TABLET
     Route: 061
  12. PERINDOPRIL [Suspect]
     Active Substance: PERINDOPRIL
     Indication: OCCUPATIONAL EXPOSURE TO PRODUCT
     Dosage: AIRBORNE EXPOSURE DURING HER WORK ,WHICH INVOLVED BREAKING AND CRUSHING DIFFERENT TYPES OF TABLET
     Route: 061
  13. METOPROLOL. [Suspect]
     Active Substance: METOPROLOL
     Indication: OCCUPATIONAL EXPOSURE TO PRODUCT
     Dosage: AIRBORNE EXPOSURE DURING HER WORK ,WHICH INVOLVED BREAKING AND CRUSHING DIFFERENT TYPES OF TABLET
     Route: 061

REACTIONS (4)
  - Blepharitis [Unknown]
  - Skin test positive [Unknown]
  - Wrong technique in product usage process [Unknown]
  - Occupational exposure to product [Unknown]

NARRATIVE: CASE EVENT DATE: 2012
